FAERS Safety Report 23699439 (Version 1)
Quarter: 2024Q2

REPORT INFORMATION
  Report Type: Spontaneous
  Country: US (occurrence: US)
  Receive Date: 20240402
  Receipt Date: 20240402
  Transmission Date: 20240716
  Serious: No
  Sender: FDA-Public Use
  Company Number: US-BIOMARINAP-US-2024-156908

PATIENT

DRUGS (1)
  1. PALYNZIQ [Suspect]
     Active Substance: PEGVALIASE-PQPZ
     Indication: Phenylketonuria
     Route: 065

REACTIONS (6)
  - Insomnia [Unknown]
  - Dyspnoea [Unknown]
  - Panic attack [Unknown]
  - Menstruation irregular [Unknown]
  - Decreased appetite [Unknown]
  - Stress [Unknown]
